FAERS Safety Report 7936536-6 (Version None)
Quarter: 2011Q4

REPORT INFORMATION
  Report Type: 
  Country: None (occurrence: None)
  Receive Date: 20111123
  Receipt Date: 20110831
  Transmission Date: 20120403
  Serious: No
  Sender: FDA-Public Use
  Company Number: US-BAYER-2011-087643

PATIENT
  Age: 76 Year
  Sex: Female

DRUGS (3)
  1. ALEVE (CAPLET) [Suspect]
     Indication: HEADACHE
     Dosage: 3 DF, QD
     Route: 048
     Dates: start: 20110401
  2. ASPIRIN [Suspect]
     Indication: HEADACHE
     Dosage: UNK, QD
     Route: 048
     Dates: start: 20110401
  3. FISH OIL [Concomitant]

REACTIONS (1)
  - HEADACHE [None]
